FAERS Safety Report 5501340-5 (Version None)
Quarter: 2007Q4

REPORT INFORMATION
  Report Type: 
  Country: None (occurrence: None)
  Receive Date: 20071026
  Receipt Date: 20071017
  Transmission Date: 20080405
  Serious: Yes (Other)
  Sender: FDA-Public Use
  Company Number: 2007SP021081

PATIENT
  Age: 44 Year
  Sex: Male
  Weight: 107.0489 kg

DRUGS (3)
  1. PEG-INTRON [Suspect]
     Indication: HEPATITIS C
     Dosage: ; SC
     Route: 058
     Dates: start: 20070712, end: 20071016
  2. RIBAVIRIN [Suspect]
     Indication: HEPATITIS C
     Dosage: ; PO
     Route: 048
     Dates: start: 20070712, end: 20071016
  3. ZOLPIDEM TARTRATE [Suspect]
     Indication: INSOMNIA

REACTIONS (14)
  - ANGER [None]
  - CHAPPED LIPS [None]
  - DEHYDRATION [None]
  - DIZZINESS [None]
  - HALLUCINATION, VISUAL [None]
  - HEADACHE [None]
  - HYPERHIDROSIS [None]
  - INSOMNIA [None]
  - LIP DRY [None]
  - MALAISE [None]
  - NIGHTMARE [None]
  - PLATELET COUNT DECREASED [None]
  - WEIGHT DECREASED [None]
  - WHITE BLOOD CELL COUNT DECREASED [None]
